FAERS Safety Report 7406069-4 (Version None)
Quarter: 2011Q2

REPORT INFORMATION
  Report Type: 
  Country: None (occurrence: None)
  Receive Date: 20110411
  Receipt Date: 20110401
  Transmission Date: 20111010
  Serious: Yes (Hospitalization)
  Sender: FDA-Public Use
  Company Number: B0711123A

PATIENT
  Sex: Male
  Weight: 76 kg

DRUGS (29)
  1. VEPESID [Concomitant]
     Indication: STEM CELL TRANSPLANT
     Dosage: 360MG PER DAY
     Route: 042
     Dates: start: 20090416, end: 20090418
  2. GASTER D [Concomitant]
     Route: 048
  3. SOLITA-T [Concomitant]
     Route: 042
  4. TPN ELECTROLYTES IN PLASTIC CONTAINER [Concomitant]
     Route: 042
  5. CIPROFLOXACIN HCL [Concomitant]
     Route: 048
  6. MAXIPIME [Concomitant]
     Route: 042
  7. BACTRIM [Concomitant]
     Route: 048
  8. SOLULACT [Concomitant]
     Route: 042
  9. MEYLON [Concomitant]
     Route: 042
  10. GLUCOSE [Concomitant]
     Route: 042
  11. NEOLAMIN [Concomitant]
     Route: 042
  12. NEUTROGIN [Concomitant]
     Route: 058
  13. KYTRIL [Concomitant]
     Route: 042
  14. SOLU-CORTEF [Concomitant]
     Route: 042
  15. FULCALIQ [Concomitant]
     Route: 042
  16. POLYMYXIN-B-SULFATE [Concomitant]
     Route: 048
  17. ADALAT [Concomitant]
     Route: 048
  18. SOLDEM 3A [Concomitant]
     Route: 042
  19. MEROPEN [Concomitant]
     Route: 042
  20. AMLODIN [Concomitant]
     Route: 048
  21. HAPTOGLOBIN [Concomitant]
     Route: 042
  22. ZOVIRAX [Concomitant]
     Route: 048
     Dates: start: 20090414
  23. CALONAL [Concomitant]
     Route: 048
  24. ALKERAN [Suspect]
     Indication: STEM CELL TRANSPLANT
     Dosage: 260MG PER DAY
     Route: 042
     Dates: start: 20090420, end: 20090420
  25. CYMERIN [Concomitant]
     Indication: STEM CELL TRANSPLANT
     Dosage: 480MG PER DAY
     Route: 042
     Dates: start: 20090415, end: 20090416
  26. CYLOCIDE [Concomitant]
     Indication: STEM CELL TRANSPLANT
     Dosage: 760MG PER DAY
     Route: 042
     Dates: start: 20090416, end: 20090418
  27. DIFLUCAN [Concomitant]
     Route: 048
     Dates: start: 20090414
  28. ALOSITOL [Concomitant]
     Route: 048
     Dates: start: 20090417
  29. ARGAMATE [Concomitant]
     Route: 048
     Dates: start: 20090417

REACTIONS (1)
  - CARDIAC FAILURE [None]
